FAERS Safety Report 4494383-4 (Version None)
Quarter: 2004Q4

REPORT INFORMATION
  Report Type: 
  Country: None (occurrence: None)
  Receive Date: 20041105
  Receipt Date: 20041004
  Transmission Date: 20050328
  Serious: Yes (Other)
  Sender: FDA-Public Use
  Company Number: PHBS2004JP13133

PATIENT
  Age: 66 Year
  Sex: Male

DRUGS (1)
  1. FASTIC [Suspect]
     Indication: DIABETES MELLITUS
     Dosage: UNK, UNK
     Route: 048
     Dates: start: 20040608, end: 20040826

REACTIONS (8)
  - ALANINE AMINOTRANSFERASE INCREASED [None]
  - ASPARTATE AMINOTRANSFERASE INCREASED [None]
  - BLOOD ALKALINE PHOSPHATASE INCREASED [None]
  - C-REACTIVE PROTEIN INCREASED [None]
  - GAMMA-GLUTAMYLTRANSFERASE INCREASED [None]
  - HEPATIC FUNCTION ABNORMAL [None]
  - ILEUS [None]
  - INFLAMMATION [None]
